FAERS Safety Report 4463516-8 (Version None)
Quarter: 2004Q3

REPORT INFORMATION
  Report Type: 
  Country: None (occurrence: None)
  Receive Date: 20040930
  Receipt Date: 20040903
  Transmission Date: 20050211
  Serious: Yes (Hospitalization, Other)
  Sender: FDA-Public Use
  Company Number: US-MERCK-0409USA00275

PATIENT
  Age: 71 Year
  Sex: Female
  Weight: 75 kg

DRUGS (10)
  1. PERCOCET [Concomitant]
     Route: 065
  2. LOTREL [Concomitant]
     Route: 065
  3. PLAVIX [Concomitant]
     Route: 065
  4. ZETIA [Concomitant]
     Route: 048
  5. SYNTHROID [Concomitant]
     Route: 065
  6. SKELAXIN [Concomitant]
     Route: 065
  7. PHENERGAN [Concomitant]
     Route: 065
  8. VIOXX [Suspect]
     Indication: PAIN MANAGEMENT
     Route: 048
     Dates: start: 20010501, end: 20040827
  9. VIOXX [Suspect]
     Indication: NECK PAIN
     Route: 048
     Dates: start: 20010501, end: 20040827
  10. ZANAFLEX [Concomitant]
     Route: 065

REACTIONS (1)
  - MYOCARDIAL INFARCTION [None]
